FAERS Safety Report 5849462-3 (Version None)
Quarter: 2008Q3

REPORT INFORMATION
  Report Type: 
  Country: None (occurrence: None)
  Receive Date: 20080819
  Receipt Date: 20080814
  Transmission Date: 20090109
  Serious: No
  Sender: FDA-Public Use
  Company Number: US-EISAI MEDICAL RESEARCH-E2020-03227-SPO-US

PATIENT
  Age: 55 Year
  Sex: Male

DRUGS (6)
  1. ARICEPT [Suspect]
     Indication: MEMORY IMPAIRMENT
     Dosage: UNKNOWN
     Route: 048
  2. CLOZAPINE [Interacting]
     Indication: PSYCHOTIC DISORDER
     Route: 048
  3. CLOZAPINE [Interacting]
     Route: 048
  4. CLOZAPINE [Interacting]
     Route: 048
  5. VALPROIC ACID [Concomitant]
     Indication: DRUG USE FOR UNKNOWN INDICATION
     Route: 048
  6. RISPERIDONE [Concomitant]
     Indication: DRUG USE FOR UNKNOWN INDICATION
     Dosage: TITRATED UP TO 6 MG/DAY
     Route: 048

REACTIONS (2)
  - DRUG INTERACTION [None]
  - NEUTROPENIA [None]
